FAERS Safety Report 7563247-1 (Version None)
Quarter: 2011Q2

REPORT INFORMATION
  Report Type: 
  Country: None (occurrence: None)
  Receive Date: 20110622
  Receipt Date: 20110617
  Transmission Date: 20111010
  Serious: Yes (Death, Hospitalization)
  Sender: FDA-Public Use
  Company Number: GB-TEVA-261256ISR

PATIENT
  Age: 25 Year
  Sex: Female

DRUGS (2)
  1. TRIMETHOPRIM [Suspect]
     Dosage: 600 MILLIGRAM;
     Dates: start: 20090906
  2. TRIMETHOPRIM [Suspect]
     Indication: URINARY TRACT INFECTION
     Dosage: 400 MILLIGRAM;
     Dates: start: 20090702

REACTIONS (10)
  - CARDIAC ARREST [None]
  - PULMONARY OEDEMA [None]
  - ADRENOCORTICAL INSUFFICIENCY ACUTE [None]
  - DECREASED APPETITE [None]
  - CONJUNCTIVITIS [None]
  - PYREXIA [None]
  - RENAL FAILURE [None]
  - ABDOMINAL PAIN [None]
  - VENTRICULAR FIBRILLATION [None]
  - HYPOVOLAEMIC SHOCK [None]
